FAERS Safety Report 5179959-3 (Version None)
Quarter: 2006Q4

REPORT INFORMATION
  Report Type: 
  Country: None (occurrence: None)
  Receive Date: 20061212
  Receipt Date: 20061127
  Transmission Date: 20070319
  Serious: Yes (Other)
  Sender: FDA-Public Use
  Company Number: S06-CAN-05119-01

PATIENT

DRUGS (1)
  1. CIPRALEX (ESCITALOPRAM) [Suspect]
     Dosage: 10 MG QD PO
     Route: 048

REACTIONS (19)
  - AGGRESSION [None]
  - AGITATION [None]
  - ANHIDROSIS [None]
  - ANOREXIA [None]
  - ANURIA [None]
  - ARTHRALGIA [None]
  - DEPERSONALISATION [None]
  - DIARRHOEA [None]
  - DIZZINESS [None]
  - DRY MOUTH [None]
  - ELECTRIC SHOCK [None]
  - HYPERTENSION [None]
  - INSOMNIA [None]
  - MYDRIASIS [None]
  - NAUSEA [None]
  - NIGHTMARE [None]
  - PALPITATIONS [None]
  - SUICIDAL IDEATION [None]
  - VOMITING [None]
